FAERS Safety Report 23732004 (Version 6)
Quarter: 2025Q2

REPORT INFORMATION
  Report Type: Spontaneous
  Country: IN (occurrence: IN)
  Receive Date: 20240411
  Receipt Date: 20250603
  Transmission Date: 20250716
  Serious: Yes (Death, Hospitalization, Other)
  Sender: PFIZER
  Company Number: IN-PFIZER INC-PV202400045860

PATIENT
  Age: 65 Year
  Sex: Female

DRUGS (3)
  1. LORLATINIB [Suspect]
     Active Substance: LORLATINIB
     Indication: Non-small cell lung cancer metastatic
     Dosage: 50 MG, 1X/DAY
     Route: 048
  2. LORLATINIB [Suspect]
     Active Substance: LORLATINIB
     Dates: start: 20240201
  3. LORLATINIB [Suspect]
     Active Substance: LORLATINIB
     Dates: start: 20241008

REACTIONS (3)
  - Death [Fatal]
  - Infection [Unknown]
  - Dyspnoea [Unknown]
